FAERS Safety Report 22143399 (Version 1)
Quarter: 2023Q1

REPORT INFORMATION
  Report Type: Spontaneous
  Country: US (occurrence: US)
  Receive Date: 20230327
  Receipt Date: 20230327
  Transmission Date: 20230417
  Serious: Yes (Other)
  Sender: FDA-Public Use
  Company Number: US-MALLINCKRODT-MNK202300593

PATIENT
  Age: 29 Year
  Sex: Female

DRUGS (7)
  1. NITRIC OXIDE [Suspect]
     Active Substance: NITRIC OXIDE
     Indication: Hypoxia
     Dosage: UNKNOWN
     Route: 055
  2. WARFARIN [Suspect]
     Active Substance: WARFARIN
     Indication: Pulmonary artery thrombosis
     Dosage: UNKNOWN
  3. WARFARIN [Suspect]
     Active Substance: WARFARIN
     Indication: Pulmonary infarction
  4. EPOPROSTENOL [Concomitant]
     Active Substance: EPOPROSTENOL
     Dosage: UNKNOWN
     Route: 042
  5. AMBRISENTAN [Concomitant]
     Active Substance: AMBRISENTAN
     Dosage: UNKNOWN
  6. OXYGEN [Concomitant]
     Active Substance: OXYGEN
     Dosage: 40 L
     Route: 045
  7. OXYGEN [Concomitant]
     Active Substance: OXYGEN
     Dosage: 2 L
     Route: 045

REACTIONS (3)
  - Pulmonary haemorrhage [Unknown]
  - Haemoptysis [Unknown]
  - Product use issue [Unknown]
